FAERS Safety Report 21515216 (Version 2)
Quarter: 2022Q4

REPORT INFORMATION
  Report Type: Report from Study
  Country: CA (occurrence: CA)
  Receive Date: 20221027
  Receipt Date: 20221205
  Transmission Date: 20230113
  Serious: Yes (Death, Hospitalization, Other)
  Sender: FDA-Public Use
  Company Number: CA-NOVARTISPH-NVSC2022CA144727

PATIENT
  Age: 48 Year
  Sex: Female
  Weight: 70 kg

DRUGS (1)
  1. TRAMETINIB [Suspect]
     Active Substance: TRAMETINIB
     Indication: Ovarian cancer
     Dosage: 2 MG
     Route: 048
     Dates: start: 20220730, end: 20220801

REACTIONS (8)
  - Intestinal perforation [Fatal]
  - Sepsis [Fatal]
  - Ascites [Unknown]
  - Dyspnoea [Unknown]
  - Intestinal obstruction [Unknown]
  - Malaise [Unknown]
  - Food intolerance [Unknown]
  - Drug ineffective [Unknown]

NARRATIVE: CASE EVENT DATE: 20220809
